FAERS Safety Report 7468510-0 (Version None)
Quarter: 2011Q2

REPORT INFORMATION
  Report Type: 
  Country: None (occurrence: None)
  Receive Date: 20110509
  Receipt Date: 20090421
  Transmission Date: 20111010
  Serious: Yes (Other)
  Sender: FDA-Public Use
  Company Number: DE-GENENTECH-318070

PATIENT
  Age: 80 Year
  Sex: Female

DRUGS (1)
  1. LUCENTIS [Suspect]
     Indication: AGE-RELATED MACULAR DEGENERATION
     Route: 031

REACTIONS (10)
  - TREMOR [None]
  - MALAISE [None]
  - HEADACHE [None]
  - VISUAL ACUITY REDUCED [None]
  - INSOMNIA [None]
  - CATARACT [None]
  - GASTROENTERITIS VIRAL [None]
  - H1N1 INFLUENZA [None]
  - CYSTITIS [None]
  - GASTRITIS [None]
